FAERS Safety Report 8769813 (Version 1)
Quarter: 2012Q4

REPORT INFORMATION
  Report Type: 
  Country: ES (occurrence: ES)
  Receive Date: 20120905
  Receipt Date: 20120905
  Transmission Date: 20130627
  Serious: Yes (Other)
  Sender: FDA-Public Use
  Company Number: ES-009507513-2012SP033352

PATIENT

DRUGS (1)
  1. IMPLANON NXT [Suspect]
     Indication: PRODUCT USED FOR UNKNOWN INDICATION
     Dosage: 1 DF, Unknown
     Route: 065
     Dates: start: 20120412

REACTIONS (3)
  - Abortion spontaneous [Recovered/Resolved]
  - Pregnancy with implant contraceptive [Recovered/Resolved]
  - Inappropriate schedule of drug administration [Unknown]
